FAERS Safety Report 4354999-2 (Version None)
Quarter: 2004Q2

REPORT INFORMATION
  Report Type: 
  Country: None (occurrence: None)
  Receive Date: 20040504
  Receipt Date: 20040422
  Transmission Date: 20050107
  Serious: Yes (Other)
  Sender: FDA-Public Use
  Company Number: 206059

PATIENT
  Age: 53 Year
  Sex: Male
  Weight: 69.8 kg

DRUGS (4)
  1. AVASTIN [Suspect]
     Indication: COLORECTAL CANCER METASTATIC
     Dosage: 360 MG, INTRAVENOUS
     Route: 042
     Dates: start: 20040420
  2. LEUCOVORIN CALCIUM [Suspect]
     Indication: COLORECTAL CANCER METASTATIC
     Dosage: 360 MG, INTRAVENOUS
     Route: 042
     Dates: start: 20040420
  3. OXALIPLATIN [Suspect]
     Indication: COLORECTAL CANCER METASTATIC
     Dosage: 70 MG, INTRAVENOUS
     Route: 042
     Dates: start: 20040420
  4. FLUOROURACIL [Concomitant]

REACTIONS (6)
  - ANAPHYLACTIC REACTION [None]
  - CONFUSIONAL STATE [None]
  - DEFAECATION URGENCY [None]
  - HYPERTENSION [None]
  - INFUSION RELATED REACTION [None]
  - MUSCLE TWITCHING [None]
